FAERS Safety Report 8269156-7 (Version None)
Quarter: 2012Q2

REPORT INFORMATION
  Report Type: 
  Country: None (occurrence: None)
  Receive Date: 20120409
  Receipt Date: 20120402
  Transmission Date: 20120825
  Serious: No
  Sender: FDA-Public Use
  Company Number: US-B.I. PHARMACEUTICALS,INC./RIDGEFIELD-2012-BP-06113BP

PATIENT
  Sex: Male

DRUGS (13)
  1. LANOXIN [Concomitant]
     Indication: ATRIAL FIBRILLATION
     Dosage: 25 MCG
     Route: 048
  2. PRADAXA [Suspect]
     Indication: ATRIAL FIBRILLATION
     Dosage: 150 MG
     Route: 048
     Dates: start: 20111201, end: 20111201
  3. PAXIL [Concomitant]
     Indication: ANXIETY
     Dosage: 20 MG
     Route: 048
  4. FLUDROCORTISONE ACETATE [Concomitant]
     Dosage: 15 MCG
     Route: 048
  5. KLOR-CON [Concomitant]
     Indication: ROUTINE HEALTH MAINTENANCE
     Route: 048
  6. PROSTATE SUPPORT 4 [Concomitant]
     Indication: ROUTINE HEALTH MAINTENANCE
     Route: 048
  7. RESTORIL [Concomitant]
     Indication: INSOMNIA
     Dosage: 15 MG
     Route: 048
  8. PRADAXA [Suspect]
     Dosage: 75 MG
     Route: 048
     Dates: start: 20120330, end: 20120331
  9. LASIX [Concomitant]
     Indication: CARDIAC FAILURE CONGESTIVE
     Dosage: 40 MG
     Route: 048
  10. TRANXENE [Concomitant]
     Indication: ANXIETY
     Dosage: 7.5 MG
     Route: 048
  11. TOPROL-XL [Concomitant]
     Indication: HYPERTENSION
     Dosage: 25 MG
     Route: 048
  12. ASPIRIN [Concomitant]
     Indication: ROUTINE HEALTH MAINTENANCE
     Dosage: 81 MG
     Route: 048
  13. PREDNISONE [Concomitant]
     Dosage: 2.5 MG
     Route: 048

REACTIONS (1)
  - HALLUCINATION [None]
